FAERS Safety Report 5955783-6 (Version None)
Quarter: 2008Q4

REPORT INFORMATION
  Report Type: 
  Country: None (occurrence: None)
  Receive Date: 20081117
  Receipt Date: 20081105
  Transmission Date: 20090506
  Serious: Yes (Hospitalization)
  Sender: FDA-Public Use
  Company Number: FR-PFIZER INC-2008083643

PATIENT
  Sex: Male
  Weight: 58 kg

DRUGS (10)
  1. MARAVIROC [Suspect]
     Indication: HIV INFECTION
     Route: 048
     Dates: start: 20080902
  2. RALTEGRAVIR [Concomitant]
     Indication: HIV INFECTION
     Route: 048
     Dates: start: 20080708
  3. ETRAVIRINE [Concomitant]
     Indication: HIV INFECTION
     Route: 048
     Dates: start: 20080902
  4. CLOPIDOGREL BISULFATE [Concomitant]
     Route: 048
     Dates: start: 20010625
  5. CITALOPRAM HYDROBROMIDE [Concomitant]
     Route: 048
     Dates: start: 20050429
  6. OMEPRAZOLE [Concomitant]
     Route: 048
     Dates: start: 20061128
  7. ZOPICLONE [Concomitant]
     Route: 048
     Dates: start: 20080111
  8. CHLORPROMAZINE HCL [Concomitant]
     Route: 048
     Dates: start: 20080605, end: 20081007
  9. ISOSORBIDE DINITRATE [Concomitant]
     Route: 048
     Dates: start: 20080605
  10. BROMAZEPAM [Concomitant]
     Route: 048
     Dates: start: 20080708

REACTIONS (2)
  - FALL [None]
  - LOSS OF CONSCIOUSNESS [None]
